FAERS Safety Report 23493346 (Version 1)
Quarter: 2024Q1

REPORT INFORMATION
  Report Type: Spontaneous
  Country: GB (occurrence: GB)
  Receive Date: 20240207
  Receipt Date: 20240207
  Transmission Date: 20240410
  Serious: Yes (Hospitalization)
  Sender: FDA-Public Use
  Company Number: None

PATIENT
  Age: 83 Year
  Sex: Female
  Weight: 92 kg

DRUGS (5)
  1. METFORMIN [Suspect]
     Active Substance: METFORMIN HYDROCHLORIDE
     Route: 065
  2. MIRTAZAPINE [Concomitant]
     Active Substance: MIRTAZAPINE
  3. OMEPRAZOLE [Concomitant]
     Active Substance: OMEPRAZOLE
  4. ATORVASTATIN [Concomitant]
     Active Substance: ATORVASTATIN
  5. VENLAFAXINE [Concomitant]
     Active Substance: VENLAFAXINE HYDROCHLORIDE

REACTIONS (1)
  - Acute kidney injury [Recovering/Resolving]
